FAERS Safety Report 5567743-8 (Version None)
Quarter: 2007Q4

REPORT INFORMATION
  Report Type: 
  Country: None (occurrence: None)
  Receive Date: 20071210
  Receipt Date: 20071126
  Transmission Date: 20080405
  Serious: Yes (Other)
  Sender: FDA-Public Use
  Company Number: GAM-124-07-FR

PATIENT
  Age: 42 Year
  Sex: Male

DRUGS (4)
  1. OCTAGAM [Suspect]
     Indication: HYPOGAMMAGLOBULINAEMIA
     Dosage: 500 MG/KG; I.V.
     Route: 042
  2. ADRIAMYCIN       (ADRIAMYCINE) [Concomitant]
  3. DEXAMETHAZONE            (DEXAMETHASONE) [Concomitant]
  4. VINCRISTINE [Concomitant]

REACTIONS (14)
  - BLINDNESS [None]
  - BRAIN OEDEMA [None]
  - CEREBROVASCULAR SPASM [None]
  - CONFUSIONAL STATE [None]
  - GRAND MAL CONVULSION [None]
  - HEADACHE [None]
  - HYPERTENSION [None]
  - HYPERVISCOSITY SYNDROME [None]
  - NAUSEA [None]
  - NUCLEAR MAGNETIC RESONANCE IMAGING BRAIN ABNORMAL [None]
  - NYSTAGMUS [None]
  - PYREXIA [None]
  - REVERSIBLE POSTERIOR LEUKOENCEPHALOPATHY SYNDROME [None]
  - TOXIC ENCEPHALOPATHY [None]
